FAERS Safety Report 15471652 (Version 1)
Quarter: 2018Q4

REPORT INFORMATION
  Report Type: Spontaneous
  Country: US (occurrence: US)
  Receive Date: 20181007
  Receipt Date: 20181007
  Transmission Date: 20190205
  Serious: No
  Sender: FDA-Public Use
  Company Number: US-SHIRE-US201838445

PATIENT
  Sex: Female

DRUGS (1)
  1. GATTEX [Suspect]
     Active Substance: TEDUGLUTIDE\WATER
     Indication: SHORT-BOWEL SYNDROME
     Dosage: 0.26 ML, UNK
     Route: 065
     Dates: start: 201803

REACTIONS (5)
  - Blood creatinine increased [Unknown]
  - Infusion site reaction [Unknown]
  - Ill-defined disorder [Unknown]
  - Nausea [Unknown]
  - Toxicity to various agents [Unknown]
